FAERS Safety Report 5960211-0 (Version None)
Quarter: 2008Q4

REPORT INFORMATION
  Report Type: 
  Country: None (occurrence: None)
  Receive Date: 20081120
  Receipt Date: 20081112
  Transmission Date: 20090506
  Serious: Yes (Other)
  Sender: FDA-Public Use
  Company Number: US-ASTRAZENECA-2008UW25316

PATIENT
  Age: 80 Year
  Sex: Male
  Weight: 77.1 kg

DRUGS (5)
  1. CRESTOR [Suspect]
     Indication: BLOOD CHOLESTEROL INCREASED
     Dosage: 5 MG
     Route: 048
     Dates: start: 20080201
  2. ASPIRIN [Concomitant]
  3. WARFARIN SODIUM [Concomitant]
  4. DIXOACIN [Concomitant]
     Dosage: 4 MG
  5. ATENOLOL [Concomitant]
     Dosage: 25 MG
     Route: 048

REACTIONS (4)
  - ANGINA PECTORIS [None]
  - BREAST SWELLING [None]
  - CORONARY ARTERY DISEASE [None]
  - WEIGHT DECREASED [None]
